FAERS Safety Report 17129658 (Version 1)
Quarter: 2019Q4

REPORT INFORMATION
  Report Type: Spontaneous
  Country: FR (occurrence: FR)
  Receive Date: 20191209
  Receipt Date: 20191209
  Transmission Date: 20200122
  Serious: Yes (Hospitalization)
  Sender: FDA-Public Use
  Company Number: FR-MYLANLABS-2019M1119682

PATIENT
  Age: 42 Year
  Sex: Female

DRUGS (7)
  1. DEXAMETHASONE. [Suspect]
     Active Substance: DEXAMETHASONE
     Indication: SURGERY
     Dosage: 8 MILLIGRAM
     Route: 042
     Dates: start: 20190709, end: 20190709
  2. KETAMINE [Suspect]
     Active Substance: KETAMINE
     Indication: ANAESTHESIA
     Dosage: 30 MILLIGRAM
     Route: 042
     Dates: start: 20190709, end: 20190709
  3. LIDOCAINE. [Suspect]
     Active Substance: LIDOCAINE
     Indication: ANAESTHESIA
     Dosage: 150 MILLIGRAM
     Route: 042
     Dates: start: 20190709, end: 20190709
  4. CEFAZOLINE MYLAN [Suspect]
     Active Substance: CEFAZOLIN SODIUM
     Indication: SURGERY
     Dosage: 4 GRAM
     Route: 042
     Dates: start: 20190709, end: 20190709
  5. SUFENTANIL [Suspect]
     Active Substance: SUFENTANIL
     Indication: ANAESTHESIA
     Dosage: 60 MICROGRAM
     Route: 042
     Dates: start: 20190709, end: 20190709
  6. PROPOFOL. [Suspect]
     Active Substance: PROPOFOL
     Indication: ANAESTHESIA
     Dosage: 350 MILLIGRAM
     Route: 042
     Dates: start: 20190709, end: 20190709
  7. ROSUVASTATINE                      /01588601/ [Suspect]
     Active Substance: ROSUVASTATIN
     Indication: ANTIBIOTIC PROPHYLAXIS
     Dosage: 80 MILLIGRAM
     Route: 042
     Dates: start: 20190709, end: 20190709

REACTIONS (1)
  - Anaphylactic shock [Recovered/Resolved]

NARRATIVE: CASE EVENT DATE: 20190709
